FAERS Safety Report 7327912-3 (Version None)
Quarter: 2011Q1

REPORT INFORMATION
  Report Type: 
  Country: None (occurrence: None)
  Receive Date: 20110224
  Receipt Date: 20110224
  Transmission Date: 20110831
  Serious: Yes (Death)
  Sender: FDA-Public Use
  Company Number: None

PATIENT
  Sex: Male
  Weight: 84.6 kg

DRUGS (3)
  1. ZEVALIN [Suspect]
     Indication: MULTIPLE MYELOMA
     Dosage: 5MCI IV
     Route: 042
     Dates: start: 20100921, end: 20100929
  2. DETIBROTIDE [Concomitant]
  3. RITUXAN [Suspect]
     Indication: MULTIPLE MYELOMA
     Dosage: 520 MG IV DAYS
     Route: 042
     Dates: start: 20100921, end: 20100929

REACTIONS (2)
  - VENOOCCLUSIVE LIVER DISEASE [None]
  - RENAL FAILURE ACUTE [None]
